FAERS Safety Report 8843756 (Version 1)
Quarter: 2012Q4

REPORT INFORMATION
  Report Type: 
  Country: JP (occurrence: JP)
  Receive Date: 20121017
  Receipt Date: 20121017
  Transmission Date: 20130627
  Serious: Yes (Death, Hospitalization, Disabling)
  Sender: FDA-Public Use
  Company Number: JP-GE HEALTHCARE MEDICAL DIAGNOSTICS-OSCN-NO-0801S-0019

PATIENT
  Age: 69 Year
  Sex: Female

DRUGS (11)
  1. OMNISCAN [Suspect]
     Indication: UTERINE POLYP
     Route: 042
     Dates: start: 20061013, end: 20061013
  2. OMNISCAN [Suspect]
     Route: 042
     Dates: start: 20070214, end: 20070214
  3. ALLOPURINOL [Concomitant]
  4. LANSOPRAZOLE [Concomitant]
  5. ACETYLSALICYLIC ACID [Concomitant]
  6. WARFARIN [Concomitant]
  7. FUROSEMIDE [Concomitant]
  8. OLOPATADINE HYDROCHLORIDE [Concomitant]
  9. CLONAZEPAM [Concomitant]
  10. PHOSBLOCK [Concomitant]
  11. FARESTON [Concomitant]

REACTIONS (8)
  - Nephrogenic systemic fibrosis [Fatal]
  - Hot flush [Not Recovered/Not Resolved]
  - Oedema peripheral [Not Recovered/Not Resolved]
  - Musculoskeletal stiffness [Not Recovered/Not Resolved]
  - Gait disturbance [Not Recovered/Not Resolved]
  - Skin hypertrophy [Not Recovered/Not Resolved]
  - Joint range of motion decreased [Not Recovered/Not Resolved]
  - Restless legs syndrome [Not Recovered/Not Resolved]
